FAERS Safety Report 7720438-4 (Version None)
Quarter: 2011Q3

REPORT INFORMATION
  Report Type: 
  Country: None (occurrence: None)
  Receive Date: 20110831
  Receipt Date: 20110822
  Transmission Date: 20111222
  Serious: Yes (Other)
  Sender: FDA-Public Use
  Company Number: US-US-EMD SERONO, INC.-237276K06USA

PATIENT
  Sex: Female

DRUGS (8)
  1. EFFEXOR [Concomitant]
     Indication: DEPRESSION
     Dates: start: 20060101
  2. REBIF [Suspect]
     Indication: MULTIPLE SCLEROSIS
     Route: 058
     Dates: start: 20030820, end: 20080801
  3. REBIF [Suspect]
     Route: 058
     Dates: start: 20090505
  4. STEROIDS [Concomitant]
     Indication: MULTIPLE SCLEROSIS RELAPSE
     Route: 042
     Dates: start: 20060801, end: 20060801
  5. TENORMIN [Concomitant]
     Indication: HYPERTENSION
  6. NORVASC [Concomitant]
     Indication: HYPERTENSION
  7. VESICARE [Concomitant]
     Indication: BLADDER DISORDER
     Dates: start: 20080101
  8. XANAX [Concomitant]
     Indication: DEPRESSION
     Dates: start: 20060101

REACTIONS (4)
  - OVARIAN CANCER RECURRENT [None]
  - CATARACT [None]
  - OVARIAN CANCER [None]
  - METASTASES TO LUNG [None]
